FAERS Safety Report 12921229 (Version 1)
Quarter: 2016Q4

REPORT INFORMATION
  Report Type: Spontaneous
  Country: US (occurrence: US)
  Receive Date: 20161107
  Receipt Date: 20161107
  Transmission Date: 20170207
  Serious: No
  Sender: FDA-Public Use
  Company Number: US-TARO-2016TAR00235

PATIENT
  Sex: Female
  Weight: 83.9 kg

DRUGS (2)
  1. LYRICA [Concomitant]
     Active Substance: PREGABALIN
  2. CARBAMAZEPINE. [Suspect]
     Active Substance: CARBAMAZEPINE
     Indication: PAIN IN JAW
     Dosage: UNK MG, UNK
     Route: 048

REACTIONS (2)
  - Off label use [Unknown]
  - Drug ineffective [Unknown]
